FAERS Safety Report 7137927-6 (Version None)
Quarter: 2010Q4

REPORT INFORMATION
  Report Type: 
  Country: None (occurrence: None)
  Receive Date: 20101103
  Receipt Date: 20100517
  Transmission Date: 20110411
  Serious: Yes (Other)
  Sender: FDA-Public Use
  Company Number: US-WYE-H15324910

PATIENT
  Age: 33 Year
  Sex: Female
  Weight: 53.57 kg

DRUGS (2)
  1. EFFEXOR XR [Suspect]
     Indication: ANXIETY
     Dosage: 75 MG 1X PER 1 DAY, ORAL
     Route: 048
     Dates: start: 20020101
  2. NUVARING (ETHYLESTRADIOL/ETONOGESTREL) [Concomitant]

REACTIONS (2)
  - NAUSEA [None]
  - RETCHING [None]
